FAERS Safety Report 12264578 (Version 1)
Quarter: 2016Q2

REPORT INFORMATION
  Report Type: Spontaneous
  Country: US (occurrence: US)
  Receive Date: 20160413
  Receipt Date: 20160413
  Transmission Date: 20160815
  Serious: No
  Sender: FDA-Public Use
  Company Number: US-JNJFOC-20160312589

PATIENT
  Age: 62 Year
  Sex: Female
  Weight: 56.7 kg

DRUGS (2)
  1. MENS ROGAINE EXTRA STRENGTH [Suspect]
     Active Substance: MINOXIDIL
     Route: 061
  2. MENS ROGAINE EXTRA STRENGTH [Suspect]
     Active Substance: MINOXIDIL
     Indication: ALOPECIA
     Dosage: ENOUGH TO WET THE SCALP, 4X OR 5X A WEEK, ONCE A DAY
     Route: 061
     Dates: end: 201512

REACTIONS (6)
  - Product physical consistency issue [None]
  - Product formulation issue [Unknown]
  - Drug ineffective [Unknown]
  - Drug administered at inappropriate site [Unknown]
  - Wrong patient received medication [Unknown]
  - Intentional product misuse [None]
